FAERS Safety Report 19489099 (Version 1)
Quarter: 2021Q3

REPORT INFORMATION
  Report Type: Spontaneous
  Country: NL (occurrence: NL)
  Receive Date: 20210703
  Receipt Date: 20210703
  Transmission Date: 20211014
  Serious: Yes (Hospitalization)
  Sender: FDA-Public Use
  Company Number: NL-TEVA-2021-NL-1928567

PATIENT
  Age: 23 Year
  Sex: Female
  Weight: 95 kg

DRUGS (1)
  1. PREDNISOLON / BRAND NAME NOT SPECIFIED [Suspect]
     Active Substance: PREDNISOLONE
     Indication: IMMUNE THROMBOCYTOPENIA
     Dosage: 1 DOSAGE FORMS ,I THOUGHT 1 OR 2 X A DAY, THEN TOOK IT FOR OVER A YEAR,THERAPY END DATE:ASKU
     Dates: start: 199705

REACTIONS (2)
  - Epilepsy [Recovered/Resolved]
  - Urge incontinence [Recovered/Resolved]

NARRATIVE: CASE EVENT DATE: 19970701
